FAERS Safety Report 5922585-6 (Version None)
Quarter: 2008Q4

REPORT INFORMATION
  Report Type: 
  Country: None (occurrence: None)
  Receive Date: 20081017
  Receipt Date: 20081007
  Transmission Date: 20090506
  Serious: Yes (Hospitalization)
  Sender: FDA-Public Use
  Company Number: GB-ROCHE-590620

PATIENT
  Sex: Female

DRUGS (2)
  1. CAPECITABINE [Suspect]
     Indication: BREAST CANCER
     Dosage: ROUTE AND DOSAGE FORM REPORTED AS PER PROTOCOL. LAST DOSE PRIOR TO SAE:  10 SEPTEMBER 2008, CYCLE 4
     Route: 048
     Dates: start: 20080409
  2. EPIRUBICIN [Suspect]
     Indication: BREAST CANCER
     Dosage: PATIENT RECEIVED CYCLE 4 DATE OF LAST DOSE PRIOR TO SAE: 10 SEPTEMBER 2008
     Route: 042
     Dates: start: 20080409

REACTIONS (5)
  - DYSPNOEA [None]
  - HYPOAESTHESIA [None]
  - PAIN IN EXTREMITY [None]
  - PERIPHERAL COLDNESS [None]
  - SKIN DISCOLOURATION [None]
